FAERS Safety Report 5337173-2 (Version None)
Quarter: 2007Q2

REPORT INFORMATION
  Report Type: 
  Country: None (occurrence: None)
  Receive Date: 20070529
  Receipt Date: 20070521
  Transmission Date: 20071010
  Serious: Yes (Other)
  Sender: FDA-Public Use
  Company Number: US-PFIZER INC-2007041027

PATIENT

DRUGS (1)
  1. GEODON [Suspect]

REACTIONS (2)
  - ADRENAL INSUFFICIENCY [None]
  - BLOOD POTASSIUM INCREASED [None]
